FAERS Safety Report 15315169 (Version 4)
Quarter: 2018Q4

REPORT INFORMATION
  Report Type: Spontaneous
  Country: US (occurrence: US)
  Receive Date: 20180824
  Receipt Date: 20181016
  Transmission Date: 20190204
  Serious: No
  Sender: FDA-Public Use
  Company Number: US-PFIZER INC-2016168503

PATIENT
  Age: 40 Year
  Sex: Female
  Weight: 90.72 kg

DRUGS (9)
  1. ULTRAM [Concomitant]
     Active Substance: TRAMADOL HYDROCHLORIDE
     Dosage: 50 MG, 3X/DAY
     Route: 048
  2. LYRICA [Suspect]
     Active Substance: PREGABALIN
     Indication: PELVIC PAIN
     Dosage: 225 MG, 2X/DAY
     Route: 048
     Dates: start: 20161109
  3. SPRINTEC [Concomitant]
     Active Substance: ETHINYL ESTRADIOL\NORGESTIMATE
     Dosage: UNK, DAILY (NORGESTIMATE: 0.25 UG; ETHINYLESTRADIOL: 35UG)
  4. CELEXA [Concomitant]
     Active Substance: CITALOPRAM HYDROBROMIDE
     Dosage: 20 MG, DAILY
     Route: 048
  5. AMOXIL [Concomitant]
     Active Substance: AMOXICILLIN
     Dosage: 875 MG, 2X/DAY (EVERY 12 HOURS)
     Route: 048
  6. ADVIL [Concomitant]
     Active Substance: IBUPROFEN
     Dosage: 400 MG, AS NEEDED (EVERY 4 TO 6 HOURS)
     Route: 048
  7. CATAPRES [Concomitant]
     Active Substance: CLONIDINE HYDROCHLORIDE
     Dosage: 0.05 MG, 1X/DAY (TAKE 1/2 TAB AT BEDTIME, MAY INCREASE TO 1 TAB TWICE DAILY.)
  8. MOTRIN IB [Concomitant]
     Active Substance: IBUPROFEN
     Dosage: 400 MG, AS NEEDED (EVERY 4 TO 6 HOURS )
     Route: 048
  9. TRAMADOL. [Concomitant]
     Active Substance: TRAMADOL
     Indication: PAIN
     Dosage: 50 MG, AS NEEDED
     Route: 048

REACTIONS (6)
  - Malaise [Not Recovered/Not Resolved]
  - Feeling of body temperature change [Not Recovered/Not Resolved]
  - Neuralgia [Not Recovered/Not Resolved]
  - Anxiety disorder [Not Recovered/Not Resolved]
  - Pain [Not Recovered/Not Resolved]
  - Product use in unapproved indication [Unknown]

NARRATIVE: CASE EVENT DATE: 20161109
